FAERS Safety Report 7577529-0 (Version None)
Quarter: 2011Q2

REPORT INFORMATION
  Report Type: 
  Country: None (occurrence: None)
  Receive Date: 20110628
  Receipt Date: 20110103
  Transmission Date: 20111010
  Serious: Yes (Other)
  Sender: FDA-Public Use
  Company Number: US-PFIZER INC-2010069615

PATIENT
  Sex: Female
  Weight: 86.168 kg

DRUGS (5)
  1. PREDNISONE [Concomitant]
     Dosage: UNK
  2. ZOLOFT [Concomitant]
     Indication: BIPOLAR I DISORDER
     Dosage: 100 MG, 1X/DAY
  3. EFFEXOR [Suspect]
     Dosage: 75 MG, 3X/DAY
     Route: 048
  4. LYRICA [Suspect]
     Indication: PAIN
     Dosage: 50 MG, 3X/DAY
     Route: 048
  5. OXYGEN [Concomitant]
     Indication: LUNG INFILTRATION
     Dosage: UNK

REACTIONS (4)
  - LUNG NEOPLASM [None]
  - OSTEOPOROSIS [None]
  - OSTEOARTHRITIS [None]
  - OSTEONECROSIS [None]
